FAERS Safety Report 7377692-0 (Version None)
Quarter: 2011Q1

REPORT INFORMATION
  Report Type: 
  Country: None (occurrence: None)
  Receive Date: 20110328
  Receipt Date: 20110316
  Transmission Date: 20110831
  Serious: Yes (Death, Hospitalization)
  Sender: FDA-Public Use
  Company Number: US-MYLANLABS-2011S1003041

PATIENT
  Age: 83 Year
  Sex: Male

DRUGS (18)
  1. HYDROCORTISONE [Concomitant]
     Route: 061
  2. ASCORBIC ACID (VIT C), INCL COMBINATIONS [Concomitant]
     Dosage: RENAL CAPS
  3. ACETAMINOPHEN [Concomitant]
  4. OMEPRAZOLE [Concomitant]
  5. NOVOLOG [Concomitant]
  6. EUCERIN [Concomitant]
     Route: 061
  7. ISOSORBIDE MONONITRATE [Concomitant]
  8. ASPIRIN [Concomitant]
  9. ALLOPURINOL [Concomitant]
  10. MORPHINE [Suspect]
     Indication: LEG AMPUTATION
     Route: 042
     Dates: start: 20110208, end: 20110208
  11. PAROXETINE HCL [Concomitant]
  12. FENTANYL-100 [Suspect]
     Indication: LEG AMPUTATION
     Dosage: CHANGED Q72H
     Route: 062
     Dates: start: 20110202, end: 20110208
  13. LOTRISONE [Concomitant]
  14. LANTUS [Concomitant]
  15. METOPROLOL SUCCINATE [Concomitant]
  16. ONDANSETRON [Concomitant]
  17. MIRALAX [Concomitant]
  18. PERCOCET [Concomitant]
     Dosage: USES ~ EVERY 2 WEEKS

REACTIONS (9)
  - SCREAMING [None]
  - URINARY TRACT INFECTION [None]
  - DRUG WITHDRAWAL SYNDROME [None]
  - HALLUCINATION [None]
  - CONFUSIONAL STATE [None]
  - THERAPY NAIVE [None]
  - OVERDOSE [None]
  - INSOMNIA [None]
  - AGITATION [None]
